FAERS Safety Report 26035239 (Version 1)
Quarter: 2025Q4

REPORT INFORMATION
  Report Type: Spontaneous
  Country: CN (occurrence: CN)
  Receive Date: 20251112
  Receipt Date: 20251112
  Transmission Date: 20260118
  Serious: Yes (Hospitalization)
  Sender: EISAI
  Company Number: CN-Eisai-EC-2025-199509

PATIENT
  Age: 68 Year
  Sex: Female
  Weight: 63 kg

DRUGS (2)
  1. ERIBULIN [Suspect]
     Active Substance: ERIBULIN
     Indication: Ovarian cancer
     Route: 041
     Dates: start: 20251023
  2. ERIBULIN [Suspect]
     Active Substance: ERIBULIN
     Indication: Thyroid cancer

REACTIONS (1)
  - Myelosuppression [Unknown]

NARRATIVE: CASE EVENT DATE: 20251027
